FAERS Safety Report 11364732 (Version 3)
Quarter: 2017Q1

REPORT INFORMATION
  Report Type: Spontaneous
  Country: AU (occurrence: AU)
  Receive Date: 20150811
  Receipt Date: 20170118
  Transmission Date: 20170428
  Serious: Yes (Hospitalization, Other)
  Sender: FDA-Public Use
  Company Number: AU-PFIZER INC-2015263026

PATIENT
  Age: 28 Year
  Sex: Male

DRUGS (5)
  1. LYRICA [Suspect]
     Active Substance: PREGABALIN
     Indication: LIMB INJURY
     Dosage: 75 MG, 2X/DAY
  2. LYRICA [Suspect]
     Active Substance: PREGABALIN
     Dosage: 70 MG, 2X/DAY
     Dates: start: 20150319, end: 20150321
  3. TRAMADOL. [Concomitant]
     Active Substance: TRAMADOL
     Dosage: 200 MG, 2X/DAY
     Dates: start: 20150302, end: 20150321
  4. LEVOTHYROXINE. [Concomitant]
     Active Substance: LEVOTHYROXINE
     Dosage: 100 MG, UNK
  5. THYROXINE [Concomitant]
     Active Substance: LEVOTHYROXINE
     Dosage: UNK
     Dates: start: 200904

REACTIONS (9)
  - Thinking abnormal [Unknown]
  - Psychomotor hyperactivity [Not Recovered/Not Resolved]
  - Vomiting [Not Recovered/Not Resolved]
  - Paranoia [Not Recovered/Not Resolved]
  - Tremor [Not Recovered/Not Resolved]
  - Quality of life decreased [Not Recovered/Not Resolved]
  - Hallucination [Not Recovered/Not Resolved]
  - Nervous system disorder [Not Recovered/Not Resolved]
  - Paralysis [Not Recovered/Not Resolved]

NARRATIVE: CASE EVENT DATE: 201503
